FAERS Safety Report 17085934 (Version 1)
Quarter: 2019Q4

REPORT INFORMATION
  Report Type: Spontaneous
  Country: US (occurrence: US)
  Receive Date: 20191128
  Receipt Date: 20191128
  Transmission Date: 20200122
  Serious: No
  Sender: FDA-Public Use
  Company Number: US-UCBSA-2018046621

PATIENT
  Age: 14 Year
  Weight: 52 kg

DRUGS (1)
  1. BRIVIACT [Suspect]
     Active Substance: BRIVARACETAM
     Indication: PRODUCT USED FOR UNKNOWN INDICATION
     Dosage: 5.7ML/KILO

REACTIONS (3)
  - Off label use [Unknown]
  - Decreased appetite [Unknown]
  - Somnolence [Unknown]
